FAERS Safety Report 5139134-5 (Version None)
Quarter: 2006Q4

REPORT INFORMATION
  Report Type: 
  Country: None (occurrence: None)
  Receive Date: 20061030
  Receipt Date: 20060627
  Transmission Date: 20070319
  Serious: No
  Sender: FDA-Public Use
  Company Number: US-GLAXOSMITHKLINE-A0610512A

PATIENT
  Age: 53 Year
  Sex: Female
  Weight: 104.1 kg

DRUGS (6)
  1. ADVAIR HFA [Suspect]
     Indication: ASTHMA
     Route: 055
     Dates: end: 20060628
  2. SYNTHROID [Concomitant]
  3. CRESTOR [Concomitant]
  4. CELEXA [Concomitant]
  5. IMITREX [Concomitant]
  6. TOPAMAX [Concomitant]

REACTIONS (2)
  - APHONIA [None]
  - DRUG ADMINISTRATION ERROR [None]
